FAERS Safety Report 8398888-5 (Version None)
Quarter: 2012Q1

REPORT INFORMATION
  Report Type: 
  Country: None (occurrence: None)
  Receive Date: 20120323
  Receipt Date: 20111121
  Transmission Date: 20120608
  Serious: Yes (Hospitalization)
  Sender: FDA-Public Use
  Company Number: 163-21880-11113198

PATIENT
  Age: 75 Year
  Sex: Male
  Weight: 92.1 kg

DRUGS (2)
  1. REVLIMID [Suspect]
     Indication: MULTIPLE MYELOMA
     Dosage: 25 MG, 1 IN 1 D, PO
     Route: 048
     Dates: start: 20110308
  2. PAIN MEDS (ANALGESICS) [Concomitant]

REACTIONS (6)
  - ASTHENIA [None]
  - ROTATOR CUFF SYNDROME [None]
  - PANCYTOPENIA [None]
  - DISEASE PROGRESSION [None]
  - CONFUSIONAL STATE [None]
  - PNEUMONIA [None]
